FAERS Safety Report 8273557 (Version 3)
Quarter: 2012Q4

REPORT INFORMATION
  Report Type: 
  Country: US (occurrence: US)
  Receive Date: 20111202
  Receipt Date: 20120912
  Transmission Date: 20130627
  Serious: Yes (Hospitalization)
  Sender: FDA-Public Use
  Company Number: US-ASTRAZENECA-2011SE71972

PATIENT
  Age: 61 Year
  Sex: Female

DRUGS (5)
  1. NEXIUM [Suspect]
     Route: 048
     Dates: start: 2001
  2. LIPITOR [Concomitant]
  3. PROZAC [Concomitant]
  4. EFFEXOR [Concomitant]
  5. EVOXAC [Concomitant]

REACTIONS (1)
  - Cataract [Unknown]
